FAERS Safety Report 11303663 (Version 1)
Quarter: 2015Q3

REPORT INFORMATION
  Report Type: Spontaneous
  Country: US (occurrence: US)
  Receive Date: 20150723
  Receipt Date: 20150723
  Transmission Date: 20151125
  Serious: No
  Sender: FDA-Public Use
  Company Number: US-JNJFOC-20150617524

PATIENT
  Age: 43 Year
  Sex: Female
  Weight: 90.72 kg

DRUGS (4)
  1. ZYRTEC [Suspect]
     Active Substance: CETIRIZINE HYDROCHLORIDE
     Route: 048
  2. PREDNISONE. [Concomitant]
     Active Substance: PREDNISONE
     Indication: DERMATITIS CONTACT
     Route: 065
     Dates: start: 20150619
  3. ZYRTEC [Suspect]
     Active Substance: CETIRIZINE HYDROCHLORIDE
     Indication: DERMATITIS CONTACT
     Route: 048
     Dates: start: 20150619
  4. HYDROCORTISONE. [Concomitant]
     Active Substance: HYDROCORTISONE
     Indication: DERMATITIS CONTACT
     Route: 065
     Dates: start: 20150619

REACTIONS (2)
  - Off label use [Unknown]
  - Overdose [Unknown]
